FAERS Safety Report 4786075-9 (Version None)
Quarter: 2005Q3

REPORT INFORMATION
  Report Type: 
  Country: None (occurrence: None)
  Receive Date: 20050930
  Receipt Date: 20050916
  Transmission Date: 20060218
  Serious: Yes (Hospitalization)
  Sender: FDA-Public Use
  Company Number: 8012125

PATIENT
  Age: 9 Year
  Sex: Male
  Weight: 28.1 kg

DRUGS (4)
  1. EQUASYM [Suspect]
     Indication: ATTENTION DEFICIT/HYPERACTIVITY DISORDER
     Dosage: 5 MG /D  PO
     Route: 048
  2. EQUASYM [Suspect]
     Indication: PSYCHOMOTOR HYPERACTIVITY
     Dosage: 5 MG /D  PO
     Route: 048
  3. CONCERTA [Suspect]
     Indication: ATTENTION DEFICIT/HYPERACTIVITY DISORDER
     Dosage: 18 MG /D  PO
     Route: 048
  4. CONCERTA [Suspect]
     Indication: PSYCHOMOTOR HYPERACTIVITY
     Dosage: 18 MG /D  PO
     Route: 048

REACTIONS (5)
  - HYPERSENSITIVITY [None]
  - PYREXIA [None]
  - RASH [None]
  - SCARLET FEVER [None]
  - VIRAL INFECTION [None]
